FAERS Safety Report 25886520 (Version 1)
Quarter: 2025Q4

REPORT INFORMATION
  Report Type: Spontaneous
  Country: US (occurrence: US)
  Receive Date: 20251006
  Receipt Date: 20251006
  Transmission Date: 20260117
  Serious: Yes (Other)
  Sender: STEMLINE THERAPEUTICS
  Company Number: US-STEMLINE THERAPEUTICS, INC-2025-STML-US003203

PATIENT

DRUGS (1)
  1. ORSERDU [Suspect]
     Active Substance: ELACESTRANT
     Indication: Breast cancer
     Dosage: 344 MG (86 MG X 4 TABS)
     Route: 048
     Dates: start: 20250814

REACTIONS (8)
  - Malignant neoplasm progression [Unknown]
  - Abdominal distension [Unknown]
  - Neck pain [Unknown]
  - Muscular weakness [Unknown]
  - Alopecia [Unknown]
  - Bone pain [Unknown]
  - Back pain [Unknown]
  - Dyspnoea [Unknown]

NARRATIVE: CASE EVENT DATE: 20250101
